FAERS Safety Report 6426270-6 (Version None)
Quarter: 2009Q4

REPORT INFORMATION
  Report Type: 
  Country: None (occurrence: None)
  Receive Date: 20091104
  Receipt Date: 20091022
  Transmission Date: 20100525
  Serious: Yes (Hospitalization, Other)
  Sender: FDA-Public Use
  Company Number: JP-ROCHE-664070

PATIENT
  Age: 64 Year
  Sex: Female

DRUGS (4)
  1. TICLOPIDINE HCL [Suspect]
     Indication: ANTIPLATELET THERAPY
     Route: 065
     Dates: start: 20000101, end: 20070301
  2. TICLOPIDINE HCL [Suspect]
     Route: 065
     Dates: start: 20070101
  3. WARFARIN SODIUM [Suspect]
     Indication: ANTICOAGULANT THERAPY
     Route: 048
     Dates: start: 20000101, end: 20070301
  4. WARFARIN SODIUM [Suspect]
     Route: 048
     Dates: start: 20070101

REACTIONS (2)
  - ANAEMIA [None]
  - SMALL INTESTINAL HAEMORRHAGE [None]
